FAERS Safety Report 23865597 (Version 2)
Quarter: 2024Q2

REPORT INFORMATION
  Report Type: Other
  Country: US (occurrence: None)
  Receive Date: 20240517
  Receipt Date: 20240527
  Transmission Date: 20240716
  Serious: Yes (Other)
  Sender: FDA-Public Use
  Company Number: US-ROCHE-3562186

PATIENT
  Age: 59 Year
  Sex: Female
  Weight: 63.56 kg

DRUGS (14)
  1. OCREVUS [Suspect]
     Active Substance: OCRELIZUMAB
     Indication: Progressive multiple sclerosis
     Route: 042
  2. ZYRTEC [Concomitant]
     Active Substance: CETIRIZINE HYDROCHLORIDE
  3. MONTELUKAST [Concomitant]
     Active Substance: MONTELUKAST SODIUM
  4. VITAMIN D3 [Concomitant]
     Active Substance: CHOLECALCIFEROL
  5. OMEPRAZOLE [Concomitant]
     Active Substance: DONEPEZIL HYDROCHLORIDE\OMEPRAZOLE\OMEPRAZOLE MAGNESIUM
  6. DICLOFENAC [Concomitant]
     Active Substance: DICLOFENAC
  7. VALACYCLOVIR [Concomitant]
     Active Substance: VALACYCLOVIR HYDROCHLORIDE
  8. ENTRESTO [Concomitant]
     Active Substance: SACUBITRIL\VALSARTAN
  9. JARDIANCE [Concomitant]
     Active Substance: EMPAGLIFLOZIN
  10. ATORVASTATIN [Concomitant]
     Active Substance: ATORVASTATIN
  11. METOPROLOL [Concomitant]
     Active Substance: METOPROLOL
  12. FUROSEMIDE [Concomitant]
     Active Substance: FUROSEMIDE
  13. SPIRONOLACTONE [Concomitant]
     Active Substance: SPIRONOLACTONE
  14. COPAXONE [Concomitant]
     Active Substance: GLATIRAMER ACETATE

REACTIONS (7)
  - Stomatitis [Recovered/Resolved]
  - Oral herpes [Recovered/Resolved]
  - Plicated tongue [Not Recovered/Not Resolved]
  - Cardiac failure congestive [Recovering/Resolving]
  - COVID-19 [Recovered/Resolved]
  - Blood cholesterol [Not Recovered/Not Resolved]
  - Coronary artery disease [Unknown]

NARRATIVE: CASE EVENT DATE: 20230101
